FAERS Safety Report 10263771 (Version 2)
Quarter: 2014Q2

REPORT INFORMATION
  Report Type: Spontaneous
  Country: US (occurrence: US)
  Receive Date: 20140627
  Receipt Date: 20140627
  Transmission Date: 20141212
  Serious: Yes (Hospitalization)
  Sender: FDA-Public Use
  Company Number: US-AMGEN-USASP2014041274

PATIENT
  Age: 54 Year
  Sex: Female

DRUGS (1)
  1. ENBREL [Suspect]
     Indication: PSORIASIS
     Dosage: 50 MG, 2 TIMES/WK
     Route: 058
     Dates: start: 20140519

REACTIONS (5)
  - Injection site erythema [Unknown]
  - Injection site inflammation [Unknown]
  - Injection site reaction [Unknown]
  - Pain in extremity [Not Recovered/Not Resolved]
  - Injection site discomfort [Recovered/Resolved]
